FAERS Safety Report 7056123 (Version 5)
Quarter: 2015Q1

REPORT INFORMATION
  Report Type: Spontaneous
  Country: US (occurrence: US)
  Receive Date: 20090721
  Receipt Date: 20150304
  Transmission Date: 20150721
  Serious: Yes (Hospitalization, Other)
  Sender: FDA-Public Use
  Company Number: US-BAYER-200926590NA

PATIENT
  Age: 31 Year
  Sex: Female
  Weight: 59.91 kg

DRUGS (4)
  1. MIRENA [Suspect]
     Active Substance: LEVONORGESTREL
     Indication: CONTRACEPTION
     Dosage: 20 MCG/24HR, CONT
     Route: 015
     Dates: start: 20080502, end: 20090715
  2. ZITHROMAX [Concomitant]
     Active Substance: AZITHROMYCIN DIHYDRATE
     Indication: DERMATITIS CONTACT
     Dates: start: 200906
  3. PRENATAL VITAMINS [Concomitant]
     Active Substance: VITAMINS
  4. PREDNISONE. [Concomitant]
     Active Substance: PREDNISONE
     Indication: DERMATITIS CONTACT
     Dates: start: 200906

REACTIONS (15)
  - Emotional distress [None]
  - Abdominal pain [None]
  - Fatigue [Unknown]
  - Injury [None]
  - Depression [None]
  - Genital haemorrhage [None]
  - Internal injury [None]
  - Rash [Unknown]
  - Anxiety [None]
  - Pelvic pain [None]
  - Medical device discomfort [None]
  - Device dislocation [None]
  - Uterine perforation [None]
  - Device dislocation [Not Recovered/Not Resolved]
  - Fear [None]

NARRATIVE: CASE EVENT DATE: 2009
